FAERS Safety Report 26051604 (Version 1)
Quarter: 2025Q4

REPORT INFORMATION
  Report Type: Spontaneous
  Country: US (occurrence: US)
  Receive Date: 20251117
  Receipt Date: 20251117
  Transmission Date: 20260118
  Serious: Yes (Life-Threatening, Hospitalization, Other)
  Sender: LUPIN
  Company Number: US-LUPIN PHARMACEUTICALS INC.-2025-10226

PATIENT
  Age: 64 Year
  Sex: Female

DRUGS (1)
  1. RAMIPRIL [Suspect]
     Active Substance: RAMIPRIL
     Indication: Hypertension
     Dosage: UNK (INGESTED?UP TO 600 MG)

REACTIONS (9)
  - Hypotension [Recovered/Resolved]
  - Shock [Recovered/Resolved]
  - Vasoplegia syndrome [Recovered/Resolved]
  - Acute kidney injury [Not Recovered/Not Resolved]
  - Liver injury [Recovered/Resolved]
  - Lactic acidosis [Recovered/Resolved]
  - Peritonitis [Recovered/Resolved]
  - Pneumatosis intestinalis [Recovered/Resolved]
  - Overdose [Unknown]
